FAERS Safety Report 7968741-7 (Version None)
Quarter: 2011Q4

REPORT INFORMATION
  Report Type: 
  Country: None (occurrence: None)
  Receive Date: 20111208
  Receipt Date: 20111128
  Transmission Date: 20120403
  Serious: Yes (Other)
  Sender: FDA-Public Use
  Company Number: GER/UKI/11/0021743

PATIENT
  Age: 50 Year
  Sex: Female

DRUGS (1)
  1. LEVETIRACETAM [Suspect]
     Indication: EPILEPSY
     Dosage: 1500 MG, 2 IN 1 D, ORAL
     Route: 048
     Dates: start: 20101201, end: 20110901

REACTIONS (2)
  - SEXUAL ACTIVITY INCREASED [None]
  - SEXUAL INHIBITION [None]
